FAERS Safety Report 8988453 (Version 2)
Quarter: 2013Q1

REPORT INFORMATION
  Report Type: Spontaneous
  Country: IT (occurrence: None)
  Receive Date: 20121218
  Receipt Date: 20130116
  Transmission Date: 20140127
  Serious: Yes (Hospitalization)
  Sender: FDA-Public Use
  Company Number: IT-1195605

PATIENT
  Age: 63 Year
  Sex: Female

DRUGS (4)
  1. VIGAMOX [Suspect]
     Indication: ANTIBIOTIC PROPHYLAXIS
     Route: 047
     Dates: start: 20121118, end: 20121118
  2. VOLTAREN [Suspect]
     Indication: SURGERY
     Route: 047
     Dates: start: 20121118, end: 20121118
  3. PENSULVIT [Concomitant]
  4. NETILDEX [Concomitant]

REACTIONS (5)
  - Palpitations [None]
  - Chest discomfort [None]
  - Tremor [None]
  - Malaise [None]
  - Off label use [None]
